FAERS Safety Report 11863515 (Version 1)
Quarter: 2015Q4

REPORT INFORMATION
  Report Type: Report from Study
  Country: US (occurrence: US)
  Receive Date: 20151223
  Receipt Date: 20151223
  Transmission Date: 20160305
  Serious: Yes (Other)
  Sender: FDA-Public Use
  Company Number: US-MALLINCKRODT-T201501513

PATIENT
  Age: 56 Year
  Sex: Female

DRUGS (2)
  1. REPOSITORY CORTICOTROPIN INJECTION [Suspect]
     Active Substance: CORTICOTROPIN
     Indication: RHEUMATOID ARTHRITIS
     Dosage: UNK TWICE WEEKLY
     Route: 058
     Dates: start: 2014, end: 201506
  2. REPOSITORY CORTICOTROPIN INJECTION [Suspect]
     Active Substance: CORTICOTROPIN
     Dosage: UNK
     Route: 058
     Dates: start: 201509, end: 201509

REACTIONS (4)
  - Swelling face [Recovered/Resolved]
  - Therapy cessation [Recovered/Resolved]
  - Hypersensitivity [Unknown]
  - Radiculopathy [Recovering/Resolving]

NARRATIVE: CASE EVENT DATE: 2014
